FAERS Safety Report 19680715 (Version 1)
Quarter: 2021Q3

REPORT INFORMATION
  Report Type: Spontaneous
  Country: US (occurrence: US)
  Receive Date: 20210810
  Receipt Date: 20210810
  Transmission Date: 20211014
  Serious: No
  Sender: FDA-Public Use
  Company Number: US-PFIZER INC-2021888348

PATIENT
  Age: 14 Year
  Sex: Male
  Weight: 69.85 kg

DRUGS (1)
  1. GENOTROPIN [Suspect]
     Active Substance: SOMATROPIN
     Indication: GROWTH HORMONE DEFICIENCY
     Dosage: UNK, ALTERNATE DAY (ONE DAY HE TAKES 2.0 AND THE NEXT DAY HE TAKES 2.2, HE ALTERNATES)
     Dates: start: 201909

REACTIONS (3)
  - Device information output issue [Unknown]
  - Poor quality device used [Unknown]
  - Drug dose omission by device [Unknown]

NARRATIVE: CASE EVENT DATE: 20210712
